FAERS Safety Report 25929072 (Version 1)
Quarter: 2025Q4

REPORT INFORMATION
  Report Type: Spontaneous
  Country: US (occurrence: US)
  Receive Date: 20251016
  Receipt Date: 20251016
  Transmission Date: 20260117
  Serious: Yes (Hospitalization, Other)
  Sender: TEVA
  Company Number: US-TEVA-VS-3380248

PATIENT
  Age: 67 Year
  Sex: Male

DRUGS (1)
  1. AUSTEDO [Suspect]
     Active Substance: DEUTETRABENAZINE
     Indication: Dyskinesia
     Route: 065
     Dates: end: 2025

REACTIONS (3)
  - Dysphagia [Not Recovered/Not Resolved]
  - Aspiration [Not Recovered/Not Resolved]
  - Emergency care [Unknown]

NARRATIVE: CASE EVENT DATE: 20250817
